FAERS Safety Report 11994755 (Version 1)
Quarter: 2016Q1

REPORT INFORMATION
  Report Type: Report from Study
  Country: US (occurrence: US)
  Receive Date: 20160203
  Receipt Date: 20160203
  Transmission Date: 20160526
  Serious: Yes (Other)
  Sender: FDA-Public Use
  Company Number: US-UCBSA-2015030796

PATIENT
  Sex: Female

DRUGS (10)
  1. LAMICTAL [Suspect]
     Active Substance: LAMOTRIGINE
     Dosage: 100MG IN AM AND 50MG IN PM, 2X/DAY (BID)
     Dates: start: 2015, end: 2015
  2. LAMICTAL [Suspect]
     Active Substance: LAMOTRIGINE
     Dosage: DOSE WEANING
     Dates: start: 2015
  3. MIRENA [Suspect]
     Active Substance: LEVONORGESTREL
     Indication: PRODUCT USED FOR UNKNOWN INDICATION
     Dosage: UNK
     Dates: start: 20151029
  4. LEVETIRACETAM. [Suspect]
     Active Substance: LEVETIRACETAM
     Dosage: INCREASED DOSE FROM 500 TO 1500
  5. IBUPROFEN. [Concomitant]
     Active Substance: IBUPROFEN
     Indication: PRODUCT USED FOR UNKNOWN INDICATION
     Dosage: 800MG EVERY 6 HOURS
     Dates: start: 2015
  6. LEVETIRACETAM. [Suspect]
     Active Substance: LEVETIRACETAM
     Dosage: UNK UNK, 2X/DAY (BID), 1000 TWICE DAILY
     Dates: end: 20151103
  7. LAMICTAL [Suspect]
     Active Substance: LAMOTRIGINE
     Indication: GENERALISED TONIC-CLONIC SEIZURE
     Dosage: UNK, 2X/DAY (BID),50 OF LAMICTAL TWICE A DAY
     Dates: start: 2015, end: 2015
  8. ALEVE [Concomitant]
     Active Substance: NAPROXEN SODIUM
     Indication: HAEMORRHAGE
     Dosage: UNK
     Dates: start: 2015
  9. LEVETIRACETAM. [Suspect]
     Active Substance: LEVETIRACETAM
     Indication: GENERALISED TONIC-CLONIC SEIZURE
     Dosage: 500 (UNKNOWN UNITS)
  10. LEVETIRACETAM. [Suspect]
     Active Substance: LEVETIRACETAM
     Dosage: INCREASED DOSE FROM 500 TO 1500

REACTIONS (13)
  - Hallucination [Unknown]
  - Somnolence [Unknown]
  - Metrorrhagia [Unknown]
  - Panic attack [Unknown]
  - Fatigue [Unknown]
  - Drug ineffective [Unknown]
  - Dizziness [Unknown]
  - Unevaluable event [Unknown]
  - Partial seizures [Unknown]
  - Adverse drug reaction [Unknown]
  - Gait disturbance [Unknown]
  - Panic reaction [Unknown]
  - Emotional disorder [Unknown]

NARRATIVE: CASE EVENT DATE: 2015
